FAERS Safety Report 20231817 (Version 1)
Quarter: 2021Q4

REPORT INFORMATION
  Report Type: Spontaneous
  Country: JP (occurrence: JP)
  Receive Date: 20211227
  Receipt Date: 20211227
  Transmission Date: 20220303
  Serious: Yes (Death)
  Sender: FDA-Public Use
  Company Number: JP-SERVIER-S21012613

PATIENT
  Age: 79 Year
  Sex: Female

DRUGS (3)
  1. ONIVYDE [Suspect]
     Active Substance: IRINOTECAN HYDROCHLORIDE
     Indication: Pancreatic carcinoma
     Dosage: 43 MG/M2, ONCE PER TWO TO THREE WEEKS
     Route: 041
     Dates: start: 20210217, end: 20210609
  2. LEVOLEUCOVORIN CALCIUM [Concomitant]
     Active Substance: LEVOLEUCOVORIN CALCIUM
     Indication: Pancreatic carcinoma
     Dosage: 200 MG/M2
     Route: 041
     Dates: start: 20210217, end: 20210609
  3. FLUOROURACIL [Concomitant]
     Active Substance: FLUOROURACIL
     Indication: Pancreatic carcinoma
     Dosage: 1350 MG/M2
     Route: 041
     Dates: start: 20210217, end: 20210611

REACTIONS (4)
  - Malignant neoplasm progression [Fatal]
  - Malaise [Unknown]
  - Decreased appetite [Unknown]
  - Oedema peripheral [Unknown]

NARRATIVE: CASE EVENT DATE: 20210101
